FAERS Safety Report 16957803 (Version 3)
Quarter: 2020Q1

REPORT INFORMATION
  Report Type: Spontaneous
  Country: US (occurrence: US)
  Receive Date: 20191024
  Receipt Date: 20200221
  Transmission Date: 20200409
  Serious: Yes (Other)
  Sender: FDA-Public Use
  Company Number: US-SA-2019SA288716

PATIENT
  Sex: Male
  Weight: 129 kg

DRUGS (5)
  1. ALBUTEROL [SALBUTAMOL] [Concomitant]
     Active Substance: ALBUTEROL
     Indication: ASTHMA
     Dosage: 2.5 MG, PRN
     Route: 055
  2. TRIAMCINOLONE [Concomitant]
     Active Substance: TRIAMCINOLONE
     Indication: DERMATITIS ATOPIC
     Dosage: UNK UNK, PRN
     Route: 061
  3. FLOVENT [Concomitant]
     Active Substance: FLUTICASONE PROPIONATE
     Indication: ASTHMA
     Dosage: UNK UNK, QD
     Route: 055
  4. PROTOPIC [Concomitant]
     Active Substance: TACROLIMUS
     Indication: DERMATITIS ATOPIC
     Dosage: UNK UNK, PRN
     Route: 061
  5. DUPIXENT [Suspect]
     Active Substance: DUPILUMAB
     Indication: DERMATITIS ATOPIC
     Dosage: UNK
     Route: 058
     Dates: start: 201905, end: 20191126

REACTIONS (7)
  - Erythema nodosum [Not Recovered/Not Resolved]
  - Nodule [Unknown]
  - Septal panniculitis [Not Recovered/Not Resolved]
  - Neutrophil count increased [Unknown]
  - Erythema [Unknown]
  - Skin mass [Unknown]
  - Limb injury [Unknown]

NARRATIVE: CASE EVENT DATE: 2019
